FAERS Safety Report 24738867 (Version 1)
Quarter: 2024Q4

REPORT INFORMATION
  Report Type: Spontaneous
  Country: US (occurrence: US)
  Receive Date: 20241216
  Receipt Date: 20241216
  Transmission Date: 20250115
  Serious: No
  Sender: DR REDDYS
  Company Number: US-DRL-USA-SPO/USA/24/0018175

PATIENT
  Age: 84 Year
  Sex: Male

DRUGS (1)
  1. CARBIDOPA\LEVODOPA [Suspect]
     Active Substance: CARBIDOPA\LEVODOPA
     Indication: Product used for unknown indication
     Dosage: 25/100MG
     Route: 065
     Dates: start: 202405

REACTIONS (4)
  - Nausea [Unknown]
  - Nervousness [Unknown]
  - Malaise [Unknown]
  - Apraxia [Unknown]
